FAERS Safety Report 8831517 (Version 1)
Quarter: 2012Q4

REPORT INFORMATION
  Report Type: 
  Country: JP (occurrence: JP)
  Receive Date: 20121008
  Receipt Date: 20121008
  Transmission Date: 20130627
  Serious: Yes (Hospitalization)
  Sender: FDA-Public Use
  Company Number: JP-GLAXOSMITHKLINE-B0823384A

PATIENT
  Age: 70 Year
  Sex: Female

DRUGS (1)
  1. VALTREX [Suspect]
     Indication: HERPES ZOSTER
     Dosage: 1000MG Three times per day
     Route: 048
     Dates: start: 20120808, end: 20120811

REACTIONS (4)
  - Decreased appetite [Recovering/Resolving]
  - Dizziness [Recovered/Resolved]
  - Vomiting [Unknown]
  - Nausea [Recovering/Resolving]
